FAERS Safety Report 21779379 (Version 1)
Quarter: 2022Q4

REPORT INFORMATION
  Report Type: Report from Study
  Country: HU (occurrence: HU)
  Receive Date: 20221226
  Receipt Date: 20221226
  Transmission Date: 20230112
  Serious: Yes (Hospitalization)
  Sender: FDA-Public Use
  Company Number: HU-ABBVIE-20P-076-3554502-00

PATIENT
  Age: 18 Year
  Sex: Male
  Weight: 67 kg

DRUGS (7)
  1. HYDROCORTISONE BUTYRATE [Suspect]
     Active Substance: HYDROCORTISONE BUTYRATE
     Indication: Dermatitis atopic
     Dosage: AS NEEDED, EVERY 1 DAYS
     Route: 061
     Dates: start: 20190425, end: 20190502
  2. MOMETASONE FUROATE [Suspect]
     Active Substance: MOMETASONE FUROATE
     Indication: Dermatitis atopic
     Dosage: 0.1 (UNITS NOT SPECIFIED) AS NEEDED EVERY 1 DAYS
     Route: 061
     Dates: start: 20190404, end: 20190425
  3. UPADACITINIB [Suspect]
     Active Substance: UPADACITINIB
     Indication: Dermatitis atopic
     Dosage: EVERY 1 DAYS
     Route: 048
     Dates: start: 20190404, end: 20190804
  4. UPADACITINIB [Suspect]
     Active Substance: UPADACITINIB
     Dosage: EVERY 1 DAYS
     Route: 048
     Dates: start: 20190805
  5. DIFFERIN [Concomitant]
     Active Substance: ADAPALENE
     Indication: Acne
     Dosage: 1 FINGERTIP, EVERY 1 DAYS
     Dates: start: 20190503
  6. DUAC [Concomitant]
     Active Substance: BENZOYL PEROXIDE\CLINDAMYCIN PHOSPHATE
     Indication: Acne
     Dosage: 1 FINGERTIP, EVERY 1 DAYS
     Dates: start: 20190503
  7. BIODERMA [Concomitant]
     Indication: Dry skin prophylaxis
     Dosage: TWICE DAILY AS NEEDED
     Dates: start: 20190326

REACTIONS (5)
  - Bacterial infection [Recovered/Resolved]
  - Dermatitis atopic [Recovered/Resolved]
  - Bacterial infection [Recovered/Resolved]
  - Impetigo [Recovered/Resolved]
  - Impetigo [Recovered/Resolved]

NARRATIVE: CASE EVENT DATE: 20200901
